FAERS Safety Report 8079563-3 (Version None)
Quarter: 2012Q1

REPORT INFORMATION
  Report Type: 
  Country: None (occurrence: None)
  Receive Date: 20120128
  Receipt Date: 20110829
  Transmission Date: 20120608
  Serious: No
  Sender: FDA-Public Use
  Company Number: US-ABBOTT-11P-163-0850187-00

PATIENT
  Age: 47 Year
  Sex: Male

DRUGS (5)
  1. XANAX [Concomitant]
     Indication: PRODUCT USED FOR UNKNOWN INDICATION
  2. HUMIRA [Suspect]
     Indication: CROHN'S DISEASE
     Dates: start: 20090101
  3. LEXAPRO [Concomitant]
     Indication: BIPOLAR I DISORDER
  4. SEROQUEL [Concomitant]
     Indication: BIPOLAR I DISORDER
  5. PERCOCET [Concomitant]
     Indication: CROHN'S DISEASE
     Dosage: 10/325MG, 2 TABLETS EVERY 4 HOURS PRN

REACTIONS (4)
  - MOBILITY DECREASED [None]
  - COUGH [None]
  - LOWER RESPIRATORY TRACT INFECTION [None]
  - SINUSITIS [None]
